FAERS Safety Report 7008814-9 (Version None)
Quarter: 2010Q3

REPORT INFORMATION
  Report Type: 
  Country: None (occurrence: None)
  Receive Date: 20100922
  Receipt Date: 20100809
  Transmission Date: 20110219
  Serious: Yes (Disabling, Other)
  Sender: FDA-Public Use
  Company Number: US-BAXTER-2010BH021173

PATIENT
  Sex: Male

DRUGS (1)
  1. HEPARIN SODIUM INJECTION [Suspect]
     Indication: PERICARDITIS CONSTRICTIVE
     Route: 065
     Dates: start: 20080301

REACTIONS (6)
  - DEEP VEIN THROMBOSIS [None]
  - EXTREMITY NECROSIS [None]
  - GANGRENE [None]
  - HEPARIN-INDUCED THROMBOCYTOPENIA [None]
  - PERIPHERAL ISCHAEMIA [None]
  - THROMBOSIS [None]
